FAERS Safety Report 7906292-6 (Version None)
Quarter: 2011Q4

REPORT INFORMATION
  Report Type: 
  Country: None (occurrence: None)
  Receive Date: 20111110
  Receipt Date: 20111102
  Transmission Date: 20120403
  Serious: Yes (Hospitalization)
  Sender: FDA-Public Use
  Company Number: CO-AMGEN-COLSP2011057529

PATIENT
  Age: 81 Year
  Sex: Female

DRUGS (2)
  1. ENBREL [Suspect]
     Indication: RHEUMATOID ARTHRITIS
     Dosage: 50 MG, WEEKLY
     Route: 058
     Dates: start: 20110107
  2. NAPROXEN [Concomitant]
     Dosage: UNK

REACTIONS (4)
  - INFLUENZA [None]
  - DRUG INEFFECTIVE [None]
  - URINARY TRACT INFECTION [None]
  - OROPHARYNGEAL PAIN [None]
